FAERS Safety Report 4314000-3 (Version None)
Quarter: 2004Q1

REPORT INFORMATION
  Report Type: 
  Country: None (occurrence: None)
  Receive Date: 20040305
  Receipt Date: 20040218
  Transmission Date: 20041129
  Serious: Yes (Disabling, Congenital Anomaly)
  Sender: FDA-Public Use
  Company Number: DSA_24019_2004

PATIENT
  Age: 33 Year
  Sex: Female

DRUGS (4)
  1. LORAZEPAM [Suspect]
     Indication: ANXIETY
     Dates: start: 20030810, end: 20030930
  2. ANAFRANIL [Suspect]
     Indication: DEPRESSION
     Dosage: 25 MG DAILY PO
     Route: 048
     Dates: start: 20030810
  3. REMERON [Suspect]
     Indication: DEPRESSION
     Dates: start: 20030810, end: 20031010
  4. CLORAZEPATE DIPOTASSIUM [Suspect]
     Indication: PANIC DISORDER
     Dosage: 10 MG DAILY PO
     Route: 048
     Dates: start: 20030901, end: 20030915

REACTIONS (4)
  - CONGENITAL ANOMALY [None]
  - FALLOT'S TETRALOGY [None]
  - MATERNAL DRUGS AFFECTING FOETUS [None]
  - PREGNANCY [None]
